FAERS Safety Report 17753407 (Version 1)
Quarter: 2020Q2

REPORT INFORMATION
  Report Type: Spontaneous
  Country: US (occurrence: US)
  Receive Date: 20200506
  Receipt Date: 20200506
  Transmission Date: 20200714
  Serious: No
  Sender: FDA-Public Use
  Company Number: US-ROCHE-2499851

PATIENT
  Sex: Male

DRUGS (1)
  1. ESBRIET [Suspect]
     Active Substance: PIRFENIDONE
     Indication: IDIOPATHIC PULMONARY FIBROSIS
     Dosage: 1 TABLET 1 TIMES A A DAY?2 TABLET 2 TIMES A A DAY?3 TABLET 3 TIMES A A DAY
     Route: 048

REACTIONS (1)
  - Neck mass [Not Recovered/Not Resolved]
